FAERS Safety Report 20370953 (Version 1)
Quarter: 2022Q1

REPORT INFORMATION
  Report Type: Spontaneous
  Country: FR (occurrence: FR)
  Receive Date: 20220124
  Receipt Date: 20220124
  Transmission Date: 20220423
  Serious: Yes (Congenital Anomaly)
  Sender: FDA-Public Use
  Company Number: FR-BoehringerIngelheim-2022-BI-107932

PATIENT
  Sex: Female

DRUGS (6)
  1. VIRAMUNE [Suspect]
     Active Substance: NEVIRAPINE
     Indication: HIV infection
     Dates: start: 20161104, end: 20161208
  2. VIREAD [Suspect]
     Active Substance: TENOFOVIR DISOPROXIL FUMARATE
     Indication: Antiretroviral therapy
     Dates: start: 20161104, end: 20170721
  3. PREZISTA [Suspect]
     Active Substance: DARUNAVIR ETHANOLATE
     Indication: Antiretroviral therapy
     Dates: start: 20161208, end: 20170621
  4. ISENTRESS [Suspect]
     Active Substance: RALTEGRAVIR POTASSIUM
     Indication: Antiretroviral therapy
     Dates: start: 20161104, end: 20161208
  5. NICARDIPINE HYDROCHLORIDE [Suspect]
     Active Substance: NICARDIPINE HYDROCHLORIDE
     Indication: Antiretroviral therapy
  6. NORVIR [Suspect]
     Active Substance: RITONAVIR
     Indication: Antiretroviral therapy
     Dates: start: 20161208, end: 20170721

REACTIONS (3)
  - Congenital choroid plexus cyst [Unknown]
  - Hemivertebra [Unknown]
  - Maternal exposure during pregnancy [Unknown]
